APPROVED DRUG PRODUCT: CARBIDOPA AND LEVODOPA
Active Ingredient: CARBIDOPA; LEVODOPA
Strength: 25MG;250MG
Dosage Form/Route: TABLET;ORAL
Application: A078536 | Product #003 | TE Code: AB
Applicant: SUN PHARMACEUTICAL INDUSTRIES LTD
Approved: Oct 28, 2008 | RLD: No | RS: No | Type: RX